FAERS Safety Report 12777029 (Version 3)
Quarter: 2017Q1

REPORT INFORMATION
  Report Type: Spontaneous
  Country: US (occurrence: US)
  Receive Date: 20160923
  Receipt Date: 20170103
  Transmission Date: 20170428
  Serious: No
  Sender: FDA-Public Use
  Company Number: US-TEVA-687467USA

PATIENT
  Sex: Female

DRUGS (2)
  1. AMRIX [Suspect]
     Active Substance: CYCLOBENZAPRINE HYDROCHLORIDE
     Dosage: 15 MILLIGRAM DAILY;
  2. GABAPENTIN. [Suspect]
     Active Substance: GABAPENTIN
     Dosage: 1200 MILLIGRAM DAILY;

REACTIONS (5)
  - Rash [Recovered/Resolved]
  - Night sweats [Recovered/Resolved]
  - Pruritus [Recovered/Resolved]
  - Sedation [Unknown]
  - Confusional state [Unknown]
